FAERS Safety Report 6838828-0 (Version None)
Quarter: 2010Q3

REPORT INFORMATION
  Report Type: 
  Country: None (occurrence: None)
  Receive Date: 20100713
  Receipt Date: 20070713
  Transmission Date: 20110219
  Serious: Yes (Other)
  Sender: FDA-Public Use
  Company Number: US-PFIZER INC-2007036646

PATIENT
  Sex: Female
  Weight: 50.909 kg

DRUGS (5)
  1. CHANTIX [Suspect]
     Indication: SMOKING CESSATION THERAPY
     Route: 048
     Dates: start: 20070426
  2. PROVIGIL [Concomitant]
  3. LEXAPRO [Concomitant]
  4. SYNTHROID [Concomitant]
  5. DEPAKOTE [Concomitant]

REACTIONS (5)
  - ABNORMAL DREAMS [None]
  - ADVERSE EVENT [None]
  - DIZZINESS [None]
  - FEELING HOT [None]
  - RESTLESSNESS [None]
